FAERS Safety Report 20344709 (Version 1)
Quarter: 2022Q1

REPORT INFORMATION
  Report Type: Spontaneous
  Country: PL (occurrence: PL)
  Receive Date: 20220118
  Receipt Date: 20220118
  Transmission Date: 20220423
  Serious: Yes (Hospitalization)
  Sender: FDA-Public Use
  Company Number: PL-TEVA-2021-PL-1987917

PATIENT
  Age: 80 Year
  Sex: Male

DRUGS (1)
  1. AZITHROMYCIN ANHYDROUS [Suspect]
     Active Substance: AZITHROMYCIN ANHYDROUS
     Dosage: FIRST DOSE 01-DEC-2021, THEN 03-DEC-2021 AND LAST DOSE 05-DEC-2021
     Route: 065
     Dates: start: 20211201, end: 20211205

REACTIONS (7)
  - Rash [Recovering/Resolving]
  - Pustule [Recovering/Resolving]
  - Skin exfoliation [Recovering/Resolving]
  - Dermatitis [Recovering/Resolving]
  - Blister [Recovering/Resolving]
  - Erythema [Recovering/Resolving]
  - Skin exfoliation [Recovering/Resolving]
